FAERS Safety Report 15526369 (Version 1)
Quarter: 2018Q4

REPORT INFORMATION
  Report Type: Spontaneous
  Country: ES (occurrence: ES)
  Receive Date: 20181018
  Receipt Date: 20181018
  Transmission Date: 20190205
  Serious: Yes (Other)
  Sender: FDA-Public Use
  Company Number: ES-009507513-1810ESP006845

PATIENT
  Age: 61 Year
  Sex: Female

DRUGS (7)
  1. ALBUTEROL (+) IPRATROPIUM BROMIDE [Suspect]
     Active Substance: ALBUTEROL\IPRATROPIUM BROMIDE
     Dosage: EVERY EIGHT HOURS
  2. TERBUTALINE SULFATE. [Suspect]
     Active Substance: TERBUTALINE SULFATE
     Dosage: UNK
  3. MONTELUKAST SODIUM. [Suspect]
     Active Substance: MONTELUKAST SODIUM
     Dosage: UNK
     Route: 048
  4. FLUTICASONE PROPIONATE (+) SALMETEROL XINAFOATE [Suspect]
     Active Substance: FLUTICASONE PROPIONATE\SALMETEROL XINAFOATE
     Dosage: 1500/150 MCG DAY
  5. AZITHROMYCIN ANHYDROUS. [Suspect]
     Active Substance: AZITHROMYCIN ANHYDROUS
     Dosage: UNK
  6. CORTICOSTEROIDS (UNSPECIFIED) [Concomitant]
     Active Substance: UNSPECIFIED INGREDIENT
     Dosage: UNK
     Route: 048
  7. DEFLAZACORT [Suspect]
     Active Substance: DEFLAZACORT
     Dosage: AS REQUIRED

REACTIONS (3)
  - Drug ineffective [Unknown]
  - Asthma [Recovering/Resolving]
  - Respiratory alkalosis [Unknown]
